FAERS Safety Report 14923525 (Version 1)
Quarter: 2018Q2

REPORT INFORMATION
  Report Type: Spontaneous
  Country: US (occurrence: US)
  Receive Date: 20180522
  Receipt Date: 20180522
  Transmission Date: 20180711
  Serious: No
  Sender: FDA-Public Use
  Company Number: US-ELI_LILLY_AND_COMPANY-US201805009132

PATIENT
  Age: 66 Year
  Sex: Male

DRUGS (1)
  1. HUMATROPE [Suspect]
     Active Substance: SOMATROPIN
     Indication: PRODUCT USED FOR UNKNOWN INDICATION
     Dosage: UNK, UNKNOWN
     Route: 058

REACTIONS (9)
  - Poor quality sleep [Recovering/Resolving]
  - Asthenia [Recovering/Resolving]
  - Heart rate irregular [Recovering/Resolving]
  - Musculoskeletal discomfort [Recovering/Resolving]
  - Wrong technique in product usage process [Unknown]
  - Body temperature fluctuation [Recovering/Resolving]
  - Feeling hot [Recovering/Resolving]
  - Blood pressure fluctuation [Recovering/Resolving]
  - Somnolence [Recovering/Resolving]

NARRATIVE: CASE EVENT DATE: 20180518
